FAERS Safety Report 6795817-2 (Version None)
Quarter: 2010Q2

REPORT INFORMATION
  Report Type: 
  Country: None (occurrence: None)
  Receive Date: 20100625
  Receipt Date: 20100616
  Transmission Date: 20101027
  Serious: Yes (Hospitalization)
  Sender: FDA-Public Use
  Company Number: A0814754A

PATIENT
  Age: 75 Year
  Sex: Female
  Weight: 53.6 kg

DRUGS (6)
  1. ADVAIR DISKUS 100/50 [Suspect]
     Indication: CHRONIC OBSTRUCTIVE PULMONARY DISEASE
     Dosage: 1PUFF TWICE PER DAY
     Route: 055
     Dates: start: 20080101
  2. OXYGEN [Concomitant]
  3. PROVENTIL [Concomitant]
  4. NEBULIZER [Concomitant]
  5. PROAIR HFA [Concomitant]
  6. SPIRIVA [Concomitant]

REACTIONS (7)
  - ABASIA [None]
  - BRONCHITIS [None]
  - CHRONIC OBSTRUCTIVE PULMONARY DISEASE [None]
  - DYSPNOEA [None]
  - FATIGUE [None]
  - GAIT DISTURBANCE [None]
  - RESPIRATORY DISORDER [None]
